FAERS Safety Report 20177391 (Version 1)
Quarter: 2021Q4

REPORT INFORMATION
  Report Type: Spontaneous
  Country: CN (occurrence: CN)
  Receive Date: 20211213
  Receipt Date: 20211213
  Transmission Date: 20220303
  Serious: Yes (Hospitalization, Other)
  Sender: FDA-Public Use
  Company Number: CN-GLAXOSMITHKLINE-CN2021APC247504

PATIENT
  Age: 28 Year
  Sex: Male
  Weight: 43 kg

DRUGS (8)
  1. LAMOTRIGINE [Interacting]
     Active Substance: LAMOTRIGINE
     Indication: Seizure
     Dosage: 75 MG IN THE MORNING/100 MG IN THE EVENING
  2. DIAZEPAM [Suspect]
     Active Substance: DIAZEPAM
     Indication: Status epilepticus
     Dosage: 10 MG
     Route: 042
  3. ARGININE [Suspect]
     Active Substance: ARGININE
     Indication: Metabolic encephalopathy
     Dosage: 20 G, QD
  4. VALPROATE SODIUM [Interacting]
     Active Substance: VALPROATE SODIUM
     Indication: Seizure
     Dosage: 0.5 G, BID
  5. PHENYTOIN [Concomitant]
     Active Substance: PHENYTOIN
     Indication: Seizure
     Dosage: 50 MG, BID
  6. CLONAZEPAM [Concomitant]
     Active Substance: CLONAZEPAM
     Indication: Seizure
     Dosage: 1 MG, BID
     Route: 048
  7. VALPROMIDE [Concomitant]
     Active Substance: VALPROMIDE
     Indication: Seizure
     Dosage: 250 MG QN
  8. LEVETIRACETAM [Concomitant]
     Active Substance: LEVETIRACETAM
     Indication: Seizure
     Dosage: 0.5 G, BID

REACTIONS (7)
  - Hyperammonaemic encephalopathy [Recovering/Resolving]
  - Vomiting [Recovering/Resolving]
  - Hypersomnia [Recovering/Resolving]
  - Electrolyte imbalance [Recovering/Resolving]
  - Drug intolerance [Unknown]
  - Drug ineffective [Unknown]
  - Drug interaction [Unknown]
